FAERS Safety Report 7745383-X (Version None)
Quarter: 2011Q3

REPORT INFORMATION
  Report Type: 
  Country: None (occurrence: None)
  Receive Date: 20110913
  Receipt Date: 20110908
  Transmission Date: 20111222
  Serious: Yes (Hospitalization, Other)
  Sender: FDA-Public Use
  Company Number: US-AMGEN-USASP2011002903

PATIENT
  Age: 23 Year
  Sex: Female

DRUGS (2)
  1. NPLATE [Suspect]
     Indication: IDIOPATHIC THROMBOCYTOPENIC PURPURA
     Dosage: 500 MUG, ONE TIME DOSE
     Dates: start: 20101105, end: 20110701
  2. ANTINEOPLASTIC AGENTS [Concomitant]

REACTIONS (3)
  - PLATELET COUNT DECREASED [None]
  - HOSPITALISATION [None]
  - BIOPSY BONE MARROW ABNORMAL [None]
